FAERS Safety Report 12994612 (Version 1)
Quarter: 2016Q4

REPORT INFORMATION
  Report Type: Spontaneous
  Country: US (occurrence: US)
  Receive Date: 20161202
  Receipt Date: 20161202
  Transmission Date: 20170207
  Serious: Yes (Other)
  Sender: FDA-Public Use
  Company Number: US-FRESENIUS KABI-FK201609344

PATIENT
  Age: 28 Year
  Sex: Female

DRUGS (3)
  1. IRINOTECAN (MANUFACTURER UNKNOWN) [Suspect]
     Active Substance: IRINOTECAN
     Indication: METASTATIC GASTRIC CANCER
     Route: 065
  2. LEUCOVORIN CALCIUM (MANUFACTURER UNKNOWN) [Suspect]
     Active Substance: LEUCOVORIN CALCIUM
     Indication: METASTATIC GASTRIC CANCER
     Route: 065
  3. FLUOROURACIL (MANUFACTURER UNKNOWN) [Suspect]
     Active Substance: FLUOROURACIL
     Indication: METASTATIC GASTRIC CANCER
     Route: 065

REACTIONS (1)
  - Posterior reversible encephalopathy syndrome [Unknown]
